FAERS Safety Report 17360300 (Version 1)
Quarter: 2020Q1

REPORT INFORMATION
  Report Type: Other
  Country: DE (occurrence: DE)
  Receive Date: 20200203
  Receipt Date: 20200203
  Transmission Date: 20200409
  Serious: Yes (Death)
  Sender: FDA-Public Use
  Company Number: DE-CELLTRION INC.-2020DE018725

PATIENT

DRUGS (10)
  1. RITUXIMAB (UNKNOWN) [Suspect]
     Active Substance: RITUXIMAB
     Dosage: NA TRANSFORMATION FROM FOLLICULAR LYMPHOMA
     Route: 065
  2. DEXAMETHASONE. [Suspect]
     Active Substance: DEXAMETHASONE
     Indication: DIFFUSE LARGE B-CELL LYMPHOMA
     Dosage: 1ST LINE, R-CHOP 2R
     Route: 065
     Dates: start: 20180502, end: 20180726
  3. CYCLOPHOSPHAMIDE. [Suspect]
     Active Substance: CYCLOPHOSPHAMIDE
     Indication: DIFFUSE LARGE B-CELL LYMPHOMA
     Dosage: 1ST LINE, R-CHOP 2R
     Route: 065
     Dates: start: 20180502, end: 20180726
  4. METHOTREXATE. [Suspect]
     Active Substance: METHOTREXATE
     Indication: DIFFUSE LARGE B-CELL LYMPHOMA
     Dosage: 1ST LINE, R-CHOP 2R
     Route: 065
     Dates: start: 20180502, end: 20180726
  5. THALIDOMIDE [Suspect]
     Active Substance: THALIDOMIDE
     Indication: DIFFUSE LARGE B-CELL LYMPHOMA
     Dosage: 1ST LINE, R-CHOP 2R
     Route: 065
     Dates: start: 20180502, end: 20180726
  6. RITUXIMAB (UNKNOWN) [Suspect]
     Active Substance: RITUXIMAB
     Indication: DIFFUSE LARGE B-CELL LYMPHOMA
     Dosage: 1ST LINE, R-CHOP 2R
     Route: 065
     Dates: start: 20180502, end: 20180726
  7. AZATHIOPRINE. [Suspect]
     Active Substance: AZATHIOPRINE
     Indication: DIFFUSE LARGE B-CELL LYMPHOMA
     Dosage: 1ST LINE, R-CHOP 2R
     Route: 065
     Dates: start: 20180502, end: 20180726
  8. RITUXIMAB (UNKNOWN) [Suspect]
     Active Substance: RITUXIMAB
     Dosage: 2ND LINE, R-ICE
     Route: 065
     Dates: start: 20181023, end: 20181216
  9. RITUXIMAB (UNKNOWN) [Suspect]
     Active Substance: RITUXIMAB
     Dosage: R-LENALINOMIDE
     Route: 065
     Dates: start: 20190228, end: 20190410
  10. BENDAMUSTINE [Suspect]
     Active Substance: BENDAMUSTINE
     Indication: DIFFUSE LARGE B-CELL LYMPHOMA
     Route: 065

REACTIONS (6)
  - Aspartate aminotransferase increased [Unknown]
  - Diarrhoea [Unknown]
  - Dyspepsia [Unknown]
  - Disease progression [Fatal]
  - Pain in extremity [Unknown]
  - Constipation [Unknown]

NARRATIVE: CASE EVENT DATE: 20190410
